FAERS Safety Report 8121230 (Version 2)
Quarter: 2013Q3

REPORT INFORMATION
  Report Type: Report from Study
  Country: CA (occurrence: CA)
  Receive Date: 20110906
  Receipt Date: 20130709
  Transmission Date: 20140515
  Serious: No
  Sender: FDA-Public Use
  Company Number: PHHY2011CA77903

PATIENT
  Sex: Female

DRUGS (3)
  1. SANDOSTATIN LAR [Suspect]
     Indication: NEUROENDOCRINE TUMOUR
     Dosage: 30 MG, QMO
     Route: 048
     Dates: start: 20110823
  2. SANDOSTATIN LAR [Suspect]
     Dosage: 30 MG, EVERY THREE WEEKS
     Route: 030
  3. PAIN [Concomitant]
     Indication: PAIN
     Dosage: UNK UKN, UNK

REACTIONS (8)
  - Tremor [Unknown]
  - Palpitations [Unknown]
  - Fatigue [Unknown]
  - Anxiety [Unknown]
  - Cold sweat [Unknown]
  - Headache [Unknown]
  - Nausea [Unknown]
  - Flushing [Unknown]
